FAERS Safety Report 7941261-1 (Version None)
Quarter: 2011Q4

REPORT INFORMATION
  Report Type: 
  Country: None (occurrence: None)
  Receive Date: 20111128
  Receipt Date: 20111115
  Transmission Date: 20120403
  Serious: Yes (Other)
  Sender: FDA-Public Use
  Company Number: US-JNJFOC-20110204269

PATIENT
  Sex: Female
  Weight: 65.77 kg

DRUGS (4)
  1. EFFEXOR [Concomitant]
     Indication: DEPRESSION
     Route: 048
     Dates: start: 20100101
  2. DULERA ORAL INHALATION [Concomitant]
     Indication: ASTHMA
     Route: 055
  3. TOPAMAX [Suspect]
     Route: 048
     Dates: start: 20100101, end: 20111108
  4. TOPAMAX [Suspect]
     Indication: DEPRESSION
     Route: 048
     Dates: start: 20100101

REACTIONS (6)
  - MEMORY IMPAIRMENT [None]
  - DYSGRAPHIA [None]
  - MENTAL IMPAIRMENT [None]
  - DISTURBANCE IN ATTENTION [None]
  - NIGHTMARE [None]
  - APHASIA [None]
